FAERS Safety Report 15936921 (Version 2)
Quarter: 2019Q1

REPORT INFORMATION
  Report Type: Spontaneous
  Country: CH (occurrence: CH)
  Receive Date: 20190208
  Receipt Date: 20190213
  Transmission Date: 20190417
  Serious: Yes (Other)
  Sender: FDA-Public Use
  Company Number: CH-TEVA-2019-CH-1010277

PATIENT
  Sex: Female

DRUGS (1)
  1. AMLODIPIN MEPHA 5MG [Suspect]
     Active Substance: AMLODIPINE MESYLATE
     Indication: HYPERTENSION
     Dosage: HALF A 5MG-TABLET (2.5MG)
     Route: 065
     Dates: start: 20190202

REACTIONS (1)
  - Laryngeal oedema [Recovering/Resolving]
